FAERS Safety Report 11131856 (Version 1)
Quarter: 2015Q2

REPORT INFORMATION
  Report Type: Spontaneous
  Country: US (occurrence: None)
  Receive Date: 20150521
  Receipt Date: 20150521
  Transmission Date: 20150821
  Serious: Yes (Hospitalization)
  Sender: FDA-Public Use
  Company Number: None

PATIENT
  Age: 39 Year
  Sex: Female
  Weight: 61.4 kg

DRUGS (2)
  1. IDARUBICIN [Suspect]
     Active Substance: IDARUBICIN
     Dates: end: 20150425
  2. CYTARABINE. [Suspect]
     Active Substance: CYTARABINE
     Dates: end: 20150429

REACTIONS (3)
  - Diarrhoea [None]
  - Bacteraemia [None]
  - Appendicitis [None]

NARRATIVE: CASE EVENT DATE: 20150508
